FAERS Safety Report 8698970 (Version 2)
Quarter: 2013Q4

REPORT INFORMATION
  Report Type: Spontaneous
  Country: US (occurrence: US)
  Receive Date: 20120802
  Receipt Date: 20131031
  Transmission Date: 20140711
  Serious: Yes (Hospitalization)
  Sender: FDA-Public Use
  Company Number: US-PFIZER INC-2012187027

PATIENT
  Age: 58 Year
  Sex: Male
  Weight: 91.61 kg

DRUGS (3)
  1. NORVASC [Suspect]
     Dosage: 5 MG, 2X/DAY
     Route: 048
     Dates: start: 2005
  2. LIPITOR [Suspect]
     Dosage: 80 MG, DAILY
     Dates: start: 2005
  3. VIAGRA [Suspect]
     Dosage: 100 MG, AS NEEDED
     Dates: start: 2005

REACTIONS (1)
  - Myocardial infarction [Unknown]
